FAERS Safety Report 4667610-8 (Version None)
Quarter: 2005Q2

REPORT INFORMATION
  Report Type: 
  Country: None (occurrence: None)
  Receive Date: 20050502
  Receipt Date: 20040707
  Transmission Date: 20051028
  Serious: Yes (Other)
  Sender: FDA-Public Use
  Company Number: PHEH2004US04599

PATIENT
  Sex: Female

DRUGS (2)
  1. LOTREL [Suspect]
     Indication: HYPERTENSION
     Dates: start: 20040406, end: 20040423
  2. CLARINEX [Concomitant]

REACTIONS (1)
  - SWELLING FACE [None]
